FAERS Safety Report 23668165 (Version 1)
Quarter: 2024Q1

REPORT INFORMATION
  Report Type: Spontaneous
  Country: US (occurrence: US)
  Receive Date: 20240325
  Receipt Date: 20240325
  Transmission Date: 20240409
  Serious: Yes (Other)
  Sender: FDA-Public Use
  Company Number: US-AUROBINDO-AUR-APL-2024-013181

PATIENT
  Age: 35 Year
  Sex: Female

DRUGS (2)
  1. LACTULOSE [Suspect]
     Active Substance: LACTULOSE
     Indication: Hyperammonaemia
     Dosage: UNK
     Route: 065
  2. RIFAXIMIN [Suspect]
     Active Substance: RIFAXIMIN
     Indication: Hyperammonaemia
     Dosage: UNK
     Route: 065

REACTIONS (1)
  - Drug ineffective [Unknown]
